FAERS Safety Report 8034517-8 (Version None)
Quarter: 2012Q1

REPORT INFORMATION
  Report Type: 
  Country: None (occurrence: None)
  Receive Date: 20120110
  Receipt Date: 20120104
  Transmission Date: 20120608
  Serious: Yes (Hospitalization)
  Sender: FDA-Public Use
  Company Number: FR-ABBOTT-12P-056-0889131-00

PATIENT
  Sex: Female

DRUGS (2)
  1. PREDNISONE TAB [Suspect]
     Indication: PSORIATIC ARTHROPATHY
     Route: 048
     Dates: start: 20110301, end: 20110901
  2. HUMIRA [Suspect]
     Indication: PSORIATIC ARTHROPATHY
     Route: 058
     Dates: start: 20110401, end: 20110827

REACTIONS (4)
  - DRUG THERAPY [None]
  - ECZEMA [None]
  - PRURITUS [None]
  - PSORIASIS [None]
